FAERS Safety Report 17859470 (Version 1)
Quarter: 2020Q2

REPORT INFORMATION
  Report Type: Spontaneous
  Country: GB (occurrence: GB)
  Receive Date: 20200604
  Receipt Date: 20200604
  Transmission Date: 20200714
  Serious: Yes (Other)
  Sender: FDA-Public Use
  Company Number: GB-TEVA-2020-GB-1243804

PATIENT
  Age: 50 Year
  Sex: Male

DRUGS (5)
  1. BISOPROLOL [Concomitant]
     Active Substance: BISOPROLOL
  2. DAKTACORT [Concomitant]
     Active Substance: HYDROCORTISONE\MICONAZOLE NITRATE
  3. OFLOXACIN. [Suspect]
     Active Substance: OFLOXACIN
     Dosage: 400 MG
     Route: 048
     Dates: start: 20200511
  4. SCHERIPROCT [Concomitant]
     Active Substance: DIBUCAINE HYDROCHLORIDE\PREDNISOLONE
  5. OMEPRAZOLE. [Concomitant]
     Active Substance: OMEPRAZOLE

REACTIONS (4)
  - Eructation [Recovering/Resolving]
  - Dysgeusia [Recovering/Resolving]
  - Tachycardia [Recovering/Resolving]
  - Dyspepsia [Recovering/Resolving]
